FAERS Safety Report 15966390 (Version 1)
Quarter: 2019Q1

REPORT INFORMATION
  Report Type: Spontaneous
  Country: US (occurrence: US)
  Receive Date: 20190214
  Receipt Date: 20190214
  Transmission Date: 20190418
  Serious: Yes (Death)
  Sender: FDA-Public Use
  Company Number: None

PATIENT
  Age: 71 Year
  Sex: Male
  Weight: 76.5 kg

DRUGS (18)
  1. CAPECITABINE. [Suspect]
     Active Substance: CAPECITABINE
     Indication: CHOLANGIOCARCINOMA
     Route: 048
     Dates: start: 20180906
  2. COREG [Concomitant]
     Active Substance: CARVEDILOL
  3. ONDANSETRON [Concomitant]
     Active Substance: ONDANSETRON
  4. PREDNISONE. [Concomitant]
     Active Substance: PREDNISONE
  5. ARIXTRA [Concomitant]
     Active Substance: FONDAPARINUX SODIUM
  6. ASPIRIN. [Concomitant]
     Active Substance: ASPIRIN
  7. ATIVAN [Concomitant]
     Active Substance: LORAZEPAM
  8. DOXYCYCLINE. [Concomitant]
     Active Substance: DOXYCYCLINE
  9. FLONASE [Concomitant]
     Active Substance: FLUTICASONE PROPIONATE
  10. XANAX [Concomitant]
     Active Substance: ALPRAZOLAM
  11. CLOTRIMAZOLE. [Concomitant]
     Active Substance: CLOTRIMAZOLE
  12. OXYCODONE [Concomitant]
     Active Substance: OXYCODONE
  13. RAMIPRIL. [Concomitant]
     Active Substance: RAMIPRIL
  14. FLAXSEED [Concomitant]
     Active Substance: FLAX SEED
  15. CRESTOR [Concomitant]
     Active Substance: ROSUVASTATIN CALCIUM
  16. AMLODIPINE [Concomitant]
     Active Substance: AMLODIPINE BESYLATE
  17. MULTIVITAMINS [Concomitant]
     Active Substance: VITAMINS
  18. PLAVIX [Concomitant]
     Active Substance: CLOPIDOGREL BISULFATE

REACTIONS (1)
  - Disease progression [None]
